FAERS Safety Report 10172110 (Version 2)
Quarter: 2014Q2

REPORT INFORMATION
  Report Type: Report from Study
  Country: US (occurrence: US)
  Receive Date: 20140515
  Receipt Date: 20140613
  Transmission Date: 20141212
  Serious: Yes (Other)
  Sender: FDA-Public Use
  Company Number: PHEH2014US009636

PATIENT
  Age: 49 Year
  Sex: Female
  Weight: 54.88 kg

DRUGS (3)
  1. GILENYA [Suspect]
     Indication: MULTIPLE SCLEROSIS
     Dosage: 0.5 MG, QD
     Route: 048
     Dates: start: 20140508, end: 20140508
  2. MULTIVITAMIN                       /00097801/ [Concomitant]
     Dosage: 1 DF, DAILY
     Route: 048
  3. VITAMIN D [Concomitant]

REACTIONS (2)
  - Electrocardiogram T wave abnormal [Recovered/Resolved]
  - Fear [Unknown]
